FAERS Safety Report 16980987 (Version 1)
Quarter: 2019Q4

REPORT INFORMATION
  Report Type: Report from Study
  Country: None (occurrence: IT)
  Receive Date: 20191031
  Receipt Date: 20191031
  Transmission Date: 20200122
  Serious: Yes (Hospitalization, Other)
  Sender: FDA-Public Use
  Company Number: IT-ABBVIE-19K-083-2982436-00

PATIENT
  Age: 80 Year
  Sex: Female

DRUGS (1)
  1. DUODOPA [Suspect]
     Active Substance: CARBIDOPA\LEVODOPA
     Indication: PARKINSON^S DISEASE
     Dosage: MD: 6+3?CR: 2.2?ED: 4
     Route: 050
     Dates: start: 20170221

REACTIONS (2)
  - Gastroenteritis viral [Unknown]
  - Viral sepsis [Recovered/Resolved]

NARRATIVE: CASE EVENT DATE: 201908
